FAERS Safety Report 13273248 (Version 1)
Quarter: 2017Q1

REPORT INFORMATION
  Report Type: Spontaneous
  Country: US (occurrence: US)
  Receive Date: 20170227
  Receipt Date: 20170227
  Transmission Date: 20170428
  Serious: No
  Sender: FDA-Public Use
  Company Number: US-BAXALTA-2017BLT000715

PATIENT
  Sex: Male
  Weight: 101 kg

DRUGS (1)
  1. GAMMAGARD LIQUID [Suspect]
     Active Substance: HUMAN IMMUNOGLOBULIN G
     Indication: MULTIFOCAL MOTOR NEUROPATHY
     Dosage: 53 G, 1X A DAY
     Route: 065

REACTIONS (3)
  - Condition aggravated [Unknown]
  - Skin discolouration [Unknown]
  - Inappropriate schedule of drug administration [Unknown]
